FAERS Safety Report 9258670 (Version 1)
Quarter: 2013Q2

REPORT INFORMATION
  Report Type: Spontaneous
  Country: US (occurrence: US)
  Receive Date: 20130426
  Receipt Date: 20130426
  Transmission Date: 20140414
  Serious: No
  Sender: FDA-Public Use
  Company Number: US-PFIZER INC-2013056680

PATIENT
  Age: 41 Year
  Sex: Male
  Weight: 158.73 kg

DRUGS (2)
  1. CHANTIX [Suspect]
     Indication: SMOKING CESSATION THERAPY
     Dosage: UNK
     Route: 048
     Dates: start: 2007
  2. CHANTIX [Suspect]
     Dosage: UNK
     Route: 048
     Dates: start: 201302

REACTIONS (1)
  - Drug ineffective [Unknown]
